FAERS Safety Report 9226106 (Version 1)
Quarter: 2013Q2

REPORT INFORMATION
  Report Type: Spontaneous
  Country: US (occurrence: US)
  Receive Date: 20130411
  Receipt Date: 20130411
  Transmission Date: 20140414
  Serious: Yes (Other)
  Sender: FDA-Public Use
  Company Number: CHPA2013US006063

PATIENT
  Sex: Male

DRUGS (2)
  1. VOLTAREN GEL [Suspect]
     Dosage: UNK, UNK
     Route: 061
     Dates: start: 201301
  2. ANTIFUNGALS [Concomitant]
     Dosage: UNK, UNK

REACTIONS (4)
  - Renal failure [Unknown]
  - Blood potassium increased [Unknown]
  - Off label use [Unknown]
  - Drug administered at inappropriate site [Unknown]
